FAERS Safety Report 9029917 (Version 2)
Quarter: 2013Q2

REPORT INFORMATION
  Report Type: Report from Study
  Country: JP (occurrence: JP)
  Receive Date: 20130124
  Receipt Date: 20130625
  Transmission Date: 20140414
  Serious: Yes (Other)
  Sender: FDA-Public Use
  Company Number: JP-VERTEX PHARMACEUTICALS INC.-2013-001078

PATIENT
  Age: 76 Year
  Sex: Male

DRUGS (9)
  1. VX-950 (TELAPREVIR) [Suspect]
     Indication: CHRONIC HEPATITIS C
     Dosage: 1500 MG, QD
     Route: 048
     Dates: start: 20120328, end: 20120426
  2. VX-950 (TELAPREVIR) [Suspect]
     Dosage: 1500 MG, QD
     Route: 048
     Dates: start: 20120502
  3. PREDONINE [Suspect]
     Indication: ADVERSE EVENT
     Dosage: 30 MG, QD
     Route: 048
     Dates: start: 20120401, end: 20120406
  4. PREDONINE [Suspect]
     Dosage: 25 MG, QD
     Route: 048
     Dates: start: 20120407, end: 20120411
  5. PREDONINE [Suspect]
     Dosage: 20 MG, QD
     Route: 048
     Dates: start: 20120412, end: 20120425
  6. PREDONINE [Suspect]
     Dosage: 10 MG, QD
     Route: 048
     Dates: start: 20120426, end: 20120516
  7. RIBAVIRIN [Concomitant]
     Dosage: 600 MG, QD
     Route: 048
     Dates: start: 20120328
  8. PEGINTERFERON ALFA-2B [Concomitant]
     Dosage: 1.5 ?G/KG, QW
     Route: 058
     Dates: start: 20120328
  9. URSO [Concomitant]
     Dosage: 900 MG, QD
     Route: 048

REACTIONS (1)
  - Diabetes mellitus [Recovered/Resolved]
